FAERS Safety Report 13828163 (Version 1)
Quarter: 2017Q3

REPORT INFORMATION
  Report Type: Spontaneous
  Country: CN (occurrence: CN)
  Receive Date: 20170803
  Receipt Date: 20170803
  Transmission Date: 20171127
  Serious: Yes (Hospitalization)
  Sender: FDA-Public Use
  Company Number: CN-ROCHE-1970889

PATIENT
  Sex: Male
  Weight: 64 kg

DRUGS (3)
  1. SODIUM CHLORIDE. [Concomitant]
     Active Substance: SODIUM CHLORIDE
     Dosage: WITH FLUCONAZOLE
     Route: 041
     Dates: start: 20170504, end: 20170509
  2. ROCEPHIN [Suspect]
     Active Substance: CEFTRIAXONE SODIUM
     Indication: LUNG INFECTION
     Route: 041
     Dates: start: 20170504, end: 20170509
  3. FLUCONAZOLE. [Suspect]
     Active Substance: FLUCONAZOLE
     Indication: CANDIDA INFECTION
     Dosage: WITH SODIUM CHLORIDE
     Route: 041
     Dates: start: 20170507, end: 20170509

REACTIONS (4)
  - Hallucination, auditory [Recovering/Resolving]
  - Dysphoria [Recovering/Resolving]
  - Language disorder [Recovering/Resolving]
  - Hallucination [Recovering/Resolving]
